FAERS Safety Report 8605561 (Version 2)
Quarter: 2013Q2

REPORT INFORMATION
  Report Type: Spontaneous
  Country: CN (occurrence: None)
  Receive Date: 20120529
  Receipt Date: 20130426
  Transmission Date: 20140414
  Serious: No
  Sender: FDA-Public Use
  Company Number: JP-2012-14928

PATIENT
  Age: 57 Year
  Sex: Male

DRUGS (2)
  1. CILOSTAZOL [Suspect]
  2. PROBUCOL [Suspect]

REACTIONS (1)
  - HEPATIC FAILURE [None]
